FAERS Safety Report 12920322 (Version 1)
Quarter: 2016Q4

REPORT INFORMATION
  Report Type: Spontaneous
  Country: US (occurrence: US)
  Receive Date: 20161108
  Receipt Date: 20161108
  Transmission Date: 20170207
  Serious: No
  Sender: FDA-Public Use
  Company Number: US-JNJFOC-20160914672

PATIENT
  Sex: Female
  Weight: 67.13 kg

DRUGS (1)
  1. TRINESSA LO [Suspect]
     Active Substance: ETHINYL ESTRADIOL\NORGESTIMATE
     Indication: MENSTRUATION IRREGULAR
     Dosage: DOSE: .18;.215;.25/.025MG
     Route: 065
     Dates: start: 20160409

REACTIONS (4)
  - Back pain [Unknown]
  - Product use issue [Unknown]
  - Metrorrhagia [Unknown]
  - Off label use [Unknown]
